FAERS Safety Report 10696706 (Version 1)
Quarter: 2015Q1

REPORT INFORMATION
  Report Type: Spontaneous
  Country: DE (occurrence: DE)
  Receive Date: 20150107
  Receipt Date: 20150107
  Transmission Date: 20150721
  Serious: Yes (Hospitalization, Other)
  Sender: FDA-Public Use
  Company Number: DE-MYLANLABS-2014M1016022

PATIENT

DRUGS (3)
  1. ZOLPIDEM [Suspect]
     Active Substance: ZOLPIDEM\ZOLPIDEM TARTRATE
     Dosage: 19 X 10MG DAILY
     Route: 065
     Dates: start: 201202
  2. LORAZEPAM. [Concomitant]
     Active Substance: LORAZEPAM
     Dosage: 1-2 MG
     Route: 065
  3. ZOLPIDEM [Suspect]
     Active Substance: ZOLPIDEM\ZOLPIDEM TARTRATE
     Indication: SLEEP DISORDER
     Dosage: 10 MG, BID
     Route: 065
     Dates: start: 201202

REACTIONS (9)
  - Overdose [Recovering/Resolving]
  - Suicidal ideation [Unknown]
  - Food craving [Unknown]
  - Drug withdrawal syndrome [Recovering/Resolving]
  - Polydipsia [Unknown]
  - Weight decreased [Recovering/Resolving]
  - Drug dependence [Recovering/Resolving]
  - Decreased appetite [Recovering/Resolving]
  - Anxiety [Unknown]
